FAERS Safety Report 9346063 (Version 1)
Quarter: 2013Q2

REPORT INFORMATION
  Report Type: Spontaneous
  Country: US (occurrence: US)
  Receive Date: 20130613
  Receipt Date: 20130613
  Transmission Date: 20140414
  Serious: Yes (Hospitalization)
  Sender: FDA-Public Use
  Company Number: 2013SP001643

PATIENT
  Age: 13 Year
  Sex: Female

DRUGS (6)
  1. XOPENEX INHALATION SOLUTION [Suspect]
     Indication: PRODUCT USED FOR UNKNOWN INDICATION
     Route: 055
     Dates: start: 20130519
  2. OMNITROPE [Suspect]
     Indication: PRODUCT USED FOR UNKNOWN INDICATION
     Dates: end: 20130519
  3. DELSYM [Concomitant]
     Indication: COUGH
     Dates: start: 20130520
  4. ZYRTEC [Concomitant]
     Indication: HYPERSENSITIVITY
  5. SINGULAIR [Concomitant]
     Indication: HYPERSENSITIVITY
  6. DULERA [Concomitant]
     Indication: ASTHMA
     Route: 055

REACTIONS (5)
  - Psychogenic seizure [Not Recovered/Not Resolved]
  - Conversion disorder [Not Recovered/Not Resolved]
  - Tremor [Not Recovered/Not Resolved]
  - Malaise [Unknown]
  - Body temperature increased [Unknown]
